FAERS Safety Report 5398900-1 (Version None)
Quarter: 2007Q3

REPORT INFORMATION
  Report Type: 
  Country: None (occurrence: None)
  Receive Date: 20070727
  Receipt Date: 20070723
  Transmission Date: 20080115
  Serious: Yes (Hospitalization)
  Sender: FDA-Public Use
  Company Number: PHEH2007US10263

PATIENT
  Sex: Female
  Weight: 67.573 kg

DRUGS (1)
  1. TEKTURNA [Suspect]
     Dosage: 150 MG, QD
     Route: 048
     Dates: start: 20070515

REACTIONS (2)
  - PANCREATIC ENZYMES INCREASED [None]
  - PANCREATITIS [None]
